FAERS Safety Report 19103900 (Version 1)
Quarter: 2021Q2

REPORT INFORMATION
  Report Type: Spontaneous
  Country: IT (occurrence: IT)
  Receive Date: 20210407
  Receipt Date: 20210407
  Transmission Date: 20210717
  Serious: Yes (Life-Threatening)
  Sender: FDA-Public Use
  Company Number: IT-BAXTER-2021BAX006517

PATIENT
  Age: 34 Year
  Sex: Male
  Weight: 77 kg

DRUGS (1)
  1. METRONIDAZOLO BAXTER S.P.A. [Suspect]
     Active Substance: METRONIDAZOLE
     Indication: DIVERTICULITIS
     Route: 042
     Dates: start: 20210320, end: 20210321

REACTIONS (1)
  - Tongue oedema [Recovering/Resolving]

NARRATIVE: CASE EVENT DATE: 20210321
